FAERS Safety Report 22250252 (Version 1)
Quarter: 2023Q2

REPORT INFORMATION
  Report Type: Report from Study
  Country: US (occurrence: US)
  Receive Date: 20230425
  Receipt Date: 20230425
  Transmission Date: 20230721
  Serious: No
  Sender: FDA-Public Use
  Company Number: US-AGIOS-2304US03322

PATIENT
  Age: 55 Year
  Sex: Female

DRUGS (1)
  1. MITAPIVAT [Suspect]
     Active Substance: MITAPIVAT
     Indication: Product used for unknown indication
     Dosage: 50 MILLIGRAM, BID
     Route: 048

REACTIONS (2)
  - Lower limb fracture [Recovering/Resolving]
  - Lower limb fracture [Recovering/Resolving]

NARRATIVE: CASE EVENT DATE: 20230101
